FAERS Safety Report 6247800-3 (Version None)
Quarter: 2009Q2

REPORT INFORMATION
  Report Type: 
  Country: None (occurrence: None)
  Receive Date: 20090626
  Receipt Date: 20090613
  Transmission Date: 20091009
  Serious: Yes (Hospitalization)
  Sender: FDA-Public Use
  Company Number: PHHY2009GB14687

PATIENT
  Sex: Male

DRUGS (1)
  1. EXJADE [Suspect]
     Indication: IRON OVERLOAD
     Dosage: 1500MG
     Route: 048
     Dates: start: 20090331

REACTIONS (11)
  - DRY MOUTH [None]
  - ERYTHEMA [None]
  - EYE PRURITUS [None]
  - EYE SWELLING [None]
  - HAEMOGLOBIN DECREASED [None]
  - OEDEMA PERIPHERAL [None]
  - OROPHARYNGEAL PAIN [None]
  - PAIN [None]
  - PARAESTHESIA [None]
  - PRURITUS [None]
  - RASH GENERALISED [None]
